FAERS Safety Report 4347980-0 (Version None)
Quarter: 2004Q1

REPORT INFORMATION
  Report Type: 
  Country: None (occurrence: None)
  Receive Date: 20040325
  Receipt Date: 20040209
  Transmission Date: 20041129
  Serious: No
  Sender: FDA-Public Use
  Company Number: USA040258768

PATIENT
  Age: 66 Year
  Sex: Female
  Weight: 47 kg

DRUGS (10)
  1. FORTEO [Suspect]
     Indication: OSTEOPOROSIS
     Dates: start: 20040110, end: 20040130
  2. LANOXIN [Concomitant]
  3. EFFEXOR [Concomitant]
  4. METHOTREXATE [Concomitant]
  5. DARVOCET-N 100 [Concomitant]
  6. HYDROCODONE [Concomitant]
  7. PRINIVIL [Concomitant]
  8. ATACAND [Concomitant]
  9. GLUCOTROL [Concomitant]
  10. REMERON [Concomitant]

REACTIONS (5)
  - ABDOMINAL PAIN UPPER [None]
  - CONSTIPATION [None]
  - DISCOMFORT [None]
  - MUSCULAR WEAKNESS [None]
  - NAUSEA [None]
